FAERS Safety Report 5577685-X (Version None)
Quarter: 2007Q4

REPORT INFORMATION
  Report Type: 
  Country: None (occurrence: None)
  Receive Date: 20071231
  Receipt Date: 20071222
  Transmission Date: 20080405
  Serious: Yes (Death, Other)
  Sender: FDA-Public Use
  Company Number: JP-BRISTOL-MYERS SQUIBB COMPANY-14027205

PATIENT
  Age: 4 Year
  Sex: Male

DRUGS (3)
  1. ENDOXAN [Suspect]
     Indication: BURKITT'S LYMPHOMA
     Dosage: 1 DOSAGE FORM = 9 G/M2.
  2. ETOPOSIDE [Suspect]
     Indication: BURKITT'S LYMPHOMA
  3. EPIRUBICIN [Suspect]
     Indication: BURKITT'S LYMPHOMA

REACTIONS (2)
  - ACUTE MYELOID LEUKAEMIA [None]
  - DEATH [None]
